FAERS Safety Report 11457579 (Version 1)
Quarter: 2015Q3

REPORT INFORMATION
  Report Type: Spontaneous
  Country: CH (occurrence: None)
  Receive Date: 20150902
  Receipt Date: 20150902
  Transmission Date: 20151125
  Serious: No
  Sender: FDA-Public Use
  Company Number: 1411CHE010719

PATIENT
  Age: 23 Year
  Sex: Female

DRUGS (7)
  1. GYNO-TARDYFERON (FERROUS SULFATE, FOLIC ACID) [Concomitant]
  2. FOLIC ACID (FOLIC ACID) [Concomitant]
     Active Substance: FOLIC ACID
  3. BACTRIM FORTE (SULFAMETHOXAZOLE, TRIMETHOPRIM) [Concomitant]
  4. CO-AMOXICILLIN (AMOXICILLIN, CLAVULANATE POTASSIUM) [Concomitant]
  5. ELEVIT (MINERALS, VITAMINS) [Concomitant]
  6. CEDAX [Suspect]
     Active Substance: CEFTIBUTEN DIHYDRATE
     Indication: ESCHERICHIA INFECTION
     Route: 048
     Dates: start: 201411, end: 2014
  7. AMOXICILLIN (AMOXICILLIN) [Concomitant]
     Active Substance: AMOXICILLIN

REACTIONS (1)
  - Maternal exposure during pregnancy [None]
